FAERS Safety Report 10229802 (Version 1)
Quarter: 2014Q2

REPORT INFORMATION
  Report Type: Spontaneous
  Country: US (occurrence: US)
  Receive Date: 20140611
  Receipt Date: 20140611
  Transmission Date: 20141212
  Serious: Yes (Other)
  Sender: FDA-Public Use
  Company Number: US-009507513-1406USA003994

PATIENT
  Age: 44 Year
  Sex: Female

DRUGS (2)
  1. JANUMET [Suspect]
     Indication: TYPE 2 DIABETES MELLITUS
     Dosage: STRENGTH: 50/1000,UNK, UNK,BID
     Route: 048
     Dates: start: 20121029, end: 20140604
  2. AMARYL [Concomitant]

REACTIONS (3)
  - Pancreatitis [Recovered/Resolved]
  - Tenderness [Recovered/Resolved]
  - Abdominal pain [Recovered/Resolved]
